FAERS Safety Report 10087284 (Version 1)
Quarter: 2014Q2

REPORT INFORMATION
  Report Type: Spontaneous
  Country: US (occurrence: US)
  Receive Date: 20140418
  Receipt Date: 20140418
  Transmission Date: 20141212
  Serious: No
  Sender: FDA-Public Use
  Company Number: US-B.I. PHARMACEUTICALS,INC./RIDGEFIELD-2014-BI-15816BP

PATIENT
  Sex: Female

DRUGS (3)
  1. DULCOEASE PINK [Suspect]
     Indication: FAECES HARD
     Dosage: 400 MG
     Route: 048
     Dates: start: 20140403
  2. VITAMIN D [Concomitant]
     Indication: SUPPLEMENTATION THERAPY
     Route: 048
  3. VITAMIN C [Concomitant]
     Indication: SUPPLEMENTATION THERAPY
     Route: 048

REACTIONS (2)
  - Overdose [Unknown]
  - Drug ineffective [Not Recovered/Not Resolved]
